FAERS Safety Report 5772809-3 (Version None)
Quarter: 2008Q2

REPORT INFORMATION
  Report Type: 
  Country: None (occurrence: None)
  Receive Date: 20080613
  Receipt Date: 20080605
  Transmission Date: 20081010
  Serious: Yes (Other)
  Sender: FDA-Public Use
  Company Number: US-PFIZER INC-2008030056

PATIENT
  Sex: Male
  Weight: 102.1 kg

DRUGS (2)
  1. LIPITOR [Suspect]
     Indication: HYPERCHOLESTEROLAEMIA
     Route: 048
     Dates: start: 20080123, end: 20080219
  2. PULMICORT [Concomitant]
     Route: 055

REACTIONS (10)
  - ALANINE AMINOTRANSFERASE INCREASED [None]
  - ALDOLASE INCREASED [None]
  - ARTHRALGIA [None]
  - ASPARTATE AMINOTRANSFERASE INCREASED [None]
  - BLOOD CREATINE PHOSPHOKINASE INCREASED [None]
  - ENCHONDROMATOSIS [None]
  - JOINT EFFUSION [None]
  - MYALGIA [None]
  - OSTEOARTHRITIS [None]
  - SYNOVIAL CYST [None]
